FAERS Safety Report 10235517 (Version 1)
Quarter: 2014Q1

REPORT INFORMATION
  Report Type: Spontaneous
  Country: US (occurrence: None)
  Receive Date: 20140306
  Receipt Date: 20140306
  Transmission Date: 20141002
  Serious: Yes (Other)
  Sender: FDA-Public Use
  Company Number: 163-21880-13021861

PATIENT
  Age: 69 Year
  Sex: Male

DRUGS (3)
  1. REVLIMID [Suspect]
     Indication: PLASMA CELL MYELOMA
     Dosage: 21 IN 28 D
     Route: 048
     Dates: start: 20110315
  2. AMLODIPINE BESYLATE (AMLODIPINE BESILATE) [Concomitant]
  3. CLONAZEPAM (CLONAZEPAM) [Concomitant]

REACTIONS (3)
  - Balance disorder [None]
  - Dizziness [None]
  - Pain in extremity [None]
